FAERS Safety Report 7986064-7 (Version None)
Quarter: 2011Q4

REPORT INFORMATION
  Report Type: 
  Country: None (occurrence: None)
  Receive Date: 20111216
  Receipt Date: 20110126
  Transmission Date: 20120403
  Serious: No
  Sender: FDA-Public Use
  Company Number: US-BRISTOL-MYERS SQUIBB COMPANY-15489941

PATIENT
  Sex: Female

DRUGS (3)
  1. ZOLOFT [Concomitant]
  2. ABILIFY [Suspect]
     Indication: BIPOLAR DISORDER
     Dosage: TOOK 4 DAYS AGO
     Dates: start: 20110101
  3. LAMICTAL [Concomitant]

REACTIONS (3)
  - SOMNOLENCE [None]
  - PALPITATIONS [None]
  - DISORIENTATION [None]
